FAERS Safety Report 4710083-7 (Version None)
Quarter: 2005Q3

REPORT INFORMATION
  Report Type: 
  Country: None (occurrence: None)
  Receive Date: 20050709
  Receipt Date: 20050701
  Transmission Date: 20060218
  Serious: Yes (Other)
  Sender: FDA-Public Use
  Company Number: PHBS2005CH09442

PATIENT
  Age: 81 Year
  Sex: Male

DRUGS (3)
  1. ZOMETA [Suspect]
     Indication: MULTIPLE MYELOMA
     Dosage: 4 MG EVERY 4 WEEKS
     Route: 042
     Dates: start: 20031201, end: 20050501
  2. TENORMIN [Concomitant]
     Indication: HYPERTENSION
     Dosage: 50 MG/DAY
  3. ISCADOR [Concomitant]
     Indication: MULTIPLE MYELOMA
     Dosage: 1 DF/DAY
     Route: 058

REACTIONS (5)
  - ASEPTIC NECROSIS BONE [None]
  - BONE FRAGMENTATION [None]
  - PERIODONTITIS [None]
  - TOOTH EXTRACTION [None]
  - WOUND DEBRIDEMENT [None]
